FAERS Safety Report 16767242 (Version 1)
Quarter: 2019Q4

REPORT INFORMATION
  Report Type: Spontaneous
  Country: US (occurrence: US)
  Receive Date: 20190903
  Receipt Date: 20190903
  Transmission Date: 20200122
  Serious: Yes (Hospitalization)
  Sender: FDA-Public Use
  Company Number: None

PATIENT
  Age: 62 Year
  Sex: Female

DRUGS (9)
  1. GLUCOSAMINE/CHONDROITIN [Concomitant]
     Dates: start: 20090829
  2. AMPYRA [Concomitant]
     Active Substance: DALFAMPRIDINE
     Dates: start: 20090829
  3. PROPRANOLOL [Concomitant]
     Active Substance: PROPRANOLOL HYDROCHLORIDE
     Dates: start: 20090829
  4. DALFAMPRIDINE. [Suspect]
     Active Substance: DALFAMPRIDINE
     Indication: MULTIPLE SCLEROSIS
     Route: 048
     Dates: start: 20181116
  5. DIOVAN [Concomitant]
     Active Substance: VALSARTAN
     Dates: start: 20090829
  6. TERCONAZOLE. [Concomitant]
     Active Substance: TERCONAZOLE
     Dates: start: 20101019
  7. FIBERCON [Concomitant]
     Active Substance: CALCIUM POLYCARBOPHIL
     Dates: start: 20090829
  8. PROTONIX [Concomitant]
     Active Substance: PANTOPRAZOLE SODIUM
     Dates: start: 20090829
  9. NORTRIPTYLIN [Concomitant]
     Active Substance: NORTRIPTYLINE
     Dates: start: 20101115

REACTIONS (4)
  - Fall [None]
  - Mobility decreased [None]
  - Muscular weakness [None]
  - Muscle twitching [None]
